FAERS Safety Report 4343931-3 (Version None)
Quarter: 2004Q2

REPORT INFORMATION
  Report Type: 
  Country: None (occurrence: None)
  Receive Date: 20040419
  Receipt Date: 20040406
  Transmission Date: 20050107
  Serious: Yes (Hospitalization)
  Sender: FDA-Public Use
  Company Number: US-JNJFOC-20040401244

PATIENT
  Age: 49 Year
  Sex: Male
  Weight: 94.8018 kg

DRUGS (9)
  1. INFLIXIMAB (INFLIXIMAB, RECOMBINANT) LYOPHILIZED POWDER [Suspect]
     Indication: RHEUMATOID ARTHRITIS
     Dosage: INTRAVENOUS
     Route: 042
     Dates: start: 20010124
  2. CELEBREX [Concomitant]
  3. FOLIC ACID [Concomitant]
  4. METHOTREXATE [Concomitant]
  5. ASPIRIN [Concomitant]
  6. NASONEX [Concomitant]
  7. ADVAIR (SERETIDE MITE) [Concomitant]
  8. CLARINEX [Concomitant]
  9. ALBUTEROL [Concomitant]

REACTIONS (6)
  - CORONARY ARTERY DISEASE [None]
  - CORONARY ARTERY STENOSIS [None]
  - HYPERCHOLESTEROLAEMIA [None]
  - MYOCARDIAL INFARCTION [None]
  - TACHYCARDIA [None]
  - URINARY TRACT INFECTION [None]
